FAERS Safety Report 22303891 (Version 3)
Quarter: 2025Q3

REPORT INFORMATION
  Report Type: Spontaneous
  Country: US (occurrence: US)
  Receive Date: 20230510
  Receipt Date: 20250908
  Transmission Date: 20251020
  Serious: No
  Sender: PFIZER
  Company Number: US-PFIZER INC-PV202300082738

PATIENT
  Age: 67 Year
  Sex: Female
  Weight: 68.8 kg

DRUGS (1)
  1. IBRANCE [Suspect]
     Active Substance: PALBOCICLIB
     Indication: Breast cancer female
     Route: 048
     Dates: start: 201810

REACTIONS (2)
  - Decreased immune responsiveness [Recovered/Resolved]
  - Neutrophil count decreased [Recovered/Resolved]
